FAERS Safety Report 20354873 (Version 1)
Quarter: 2022Q1

REPORT INFORMATION
  Report Type: Report from Study
  Country: US (occurrence: US)
  Receive Date: 20220120
  Receipt Date: 20220120
  Transmission Date: 20220424
  Serious: Yes (Other)
  Sender: FDA-Public Use
  Company Number: US-GILEAD-2021-0563682

PATIENT
  Age: 30 Year
  Sex: Female

DRUGS (11)
  1. AZTREONAM LYSINE [Suspect]
     Active Substance: AZTREONAM LYSINE
     Indication: Cystic fibrosis
     Dosage: 75 MG, TID, FOR 28 DAYS ON, THEN 28 DAYS OFF, REPEAT
     Route: 055
     Dates: start: 20211121
  2. AZTREONAM LYSINE [Suspect]
     Active Substance: AZTREONAM LYSINE
     Indication: Pseudomonas infection
  3. TRIKAFTA [Concomitant]
     Active Substance: ELEXACAFTOR\IVACAFTOR\TEZACAFTOR
  4. CREON [Concomitant]
     Active Substance: PANCRELIPASE AMYLASE\PANCRELIPASE LIPASE\PANCRELIPASE PROTEASE
  5. HYDROXYCHLOROQUINE SULFATE [Concomitant]
     Active Substance: HYDROXYCHLOROQUINE SULFATE
  6. ALBUTEROL [Concomitant]
     Active Substance: ALBUTEROL
  7. FERROUS SULFATE [Concomitant]
     Active Substance: FERROUS SULFATE
  8. ALLOPURINOL [Concomitant]
     Active Substance: ALLOPURINOL
  9. SODIUM CHLORIDE [Concomitant]
     Active Substance: SODIUM CHLORIDE
  10. AZITHROMYCIN [Concomitant]
     Active Substance: AZITHROMYCIN
  11. PULMOZYME [Concomitant]
     Active Substance: DORNASE ALFA

REACTIONS (2)
  - Cystic fibrosis [Unknown]
  - Infection [Not Recovered/Not Resolved]
